FAERS Safety Report 4791329-6 (Version None)
Quarter: 2005Q4

REPORT INFORMATION
  Report Type: 
  Country: None (occurrence: None)
  Receive Date: 20051007
  Receipt Date: 20050928
  Transmission Date: 20060501
  Serious: Yes (Other)
  Sender: FDA-Public Use
  Company Number: US-JNJFOC-20050906883

PATIENT
  Sex: Female
  Weight: 138.35 kg

DRUGS (4)
  1. REMICADE [Suspect]
     Indication: RHEUMATOID ARTHRITIS
     Route: 042
  2. PREDNISON [Concomitant]
  3. LEFLUNOMIDE [Concomitant]
  4. ETANERCEPT [Concomitant]

REACTIONS (3)
  - EMOTIONAL DISTRESS [None]
  - GALLBLADDER DISORDER [None]
  - TREATMENT NONCOMPLIANCE [None]
